FAERS Safety Report 12070811 (Version 7)
Quarter: 2024Q3

REPORT INFORMATION
  Report Type: Report from Study
  Country: US (occurrence: US)
  Receive Date: 20160211
  Receipt Date: 20240822
  Transmission Date: 20241016
  Serious: Yes (Hospitalization, Other)
  Sender: AEGERION
  Company Number: US-AEGERION PHARMACEUTICAL INC.-AEGR002377

PATIENT
  Age: 68 Year
  Sex: Female
  Weight: 75.6 kg

DRUGS (22)
  1. JUXTAPID [Suspect]
     Active Substance: LOMITAPIDE MESYLATE
     Indication: Type IIa hyperlipidaemia
     Dosage: 5 MG, QD
     Route: 048
     Dates: start: 20150331, end: 20150814
  2. JUXTAPID [Suspect]
     Active Substance: LOMITAPIDE MESYLATE
     Dosage: UNK
  3. ASPIRIN [Concomitant]
     Active Substance: ASPIRIN
     Indication: Peripheral vascular disorder
     Dosage: 81 MG, QD
     Route: 048
     Dates: start: 20090626
  4. ATORVASTATIN [Concomitant]
     Active Substance: ATORVASTATIN
     Indication: Dyslipidaemia
     Dosage: 80 MG, QD
     Route: 048
     Dates: start: 20130912
  5. CHANTIX [Concomitant]
     Active Substance: VARENICLINE TARTRATE
     Indication: Smoking cessation therapy
     Dosage: 1 MG, UNK
     Route: 048
     Dates: start: 20150626, end: 20150626
  6. CYMBALTA [Concomitant]
     Active Substance: DULOXETINE HYDROCHLORIDE
     Indication: Peripheral vascular disorder
     Dosage: 30 MG, QD
     Route: 048
     Dates: start: 20150331
  7. CYMBALTA [Concomitant]
     Active Substance: DULOXETINE HYDROCHLORIDE
     Dosage: 60 MG, QD
     Route: 048
     Dates: start: 20150331
  8. FUROSEMIDE [Concomitant]
     Active Substance: FUROSEMIDE
     Indication: Hypertension
     Dosage: 20 MG, QD
     Route: 048
     Dates: start: 2006
  9. METOPROLOL TARTRATE [Concomitant]
     Active Substance: METOPROLOL TARTRATE
     Indication: Hypertension
     Dosage: 100 MG, QD
     Route: 048
     Dates: start: 2006
  10. NEXIUM [Concomitant]
     Active Substance: ESOMEPRAZOLE MAGNESIUM
     Indication: Gastrooesophageal reflux disease
     Dosage: 40 MG, QD
     Route: 048
     Dates: start: 2006
  11. NICOTINE [Concomitant]
     Active Substance: NICOTINE
     Indication: Smoking cessation therapy
     Dosage: 21 MG, QD
     Route: 061
     Dates: start: 20150323, end: 20151207
  12. PLAVIX [Concomitant]
     Active Substance: CLOPIDOGREL BISULFATE
     Indication: Peripheral vascular disorder
     Dosage: 75 MG, QD
     Route: 048
     Dates: start: 2006, end: 20160213
  13. APIXABAN [Concomitant]
     Active Substance: APIXABAN
     Indication: Cardiovascular disorder
     Dosage: 5 MG, BID
     Route: 048
     Dates: start: 20160103, end: 20170222
  14. APIXABAN [Concomitant]
     Active Substance: APIXABAN
     Indication: Condition aggravated
     Dosage: 2.5 MILLIGRAM, BID
     Route: 048
     Dates: start: 20160106, end: 20160110
  15. APIXABAN [Concomitant]
     Active Substance: APIXABAN
     Indication: Carotid artery disease
     Dosage: 5 MILLIGRAM, BID
     Route: 048
     Dates: start: 20160111, end: 20160213
  16. CELESTONE [Concomitant]
     Active Substance: BETAMETHASONE
     Indication: Trigeminal neuralgia
     Dosage: 12 MG, ONE TIME DOSE
     Route: 030
     Dates: start: 20150712, end: 20150712
  17. CELESTONE [Concomitant]
     Active Substance: BETAMETHASONE
     Dosage: 9 MILLIGRAM
     Route: 030
     Dates: start: 20160903, end: 20160903
  18. CLOPIDOGREL BISULFATE [Concomitant]
     Active Substance: CLOPIDOGREL BISULFATE
     Indication: Peripheral vascular disorder
     Dosage: 75 MG, QD
     Route: 048
     Dates: start: 20160103, end: 202010
  19. COLACE [Concomitant]
     Active Substance: DOCUSATE SODIUM
     Indication: Constipation
     Dosage: 100 MG, BID
     Route: 048
     Dates: start: 20160309, end: 20160512
  20. DEPO-MEDROL [Concomitant]
     Active Substance: METHYLPREDNISOLONE ACETATE
     Indication: Trigeminal neuralgia
     Dosage: 80 MG, ONE TIME DOSE
     Route: 030
     Dates: start: 20150712, end: 20150712
  21. FERREX 150 FORTE [Concomitant]
     Active Substance: CYANOCOBALAMIN\FOLIC ACID\IRON
     Indication: Nutritional supplementation
     Dosage: 150 MG-25-1 (ONE CAPSULE), BID
     Route: 048
     Dates: start: 20160103, end: 20160512
  22. NEURONTIN [Concomitant]
     Active Substance: GABAPENTIN
     Indication: Trigeminal neuralgia
     Dosage: 300 MG, TID
     Route: 048
     Dates: start: 20160512, end: 20160512

REACTIONS (7)
  - Anaemia [Recovered/Resolved]
  - Carotid artery disease [Recovered/Resolved]
  - Haematoma [Recovered/Resolved]
  - Blood potassium increased [Recovered/Resolved]
  - Anxiety [Recovered/Resolved]
  - Gait disturbance [Recovered/Resolved]
  - Dizziness [Recovered/Resolved]

NARRATIVE: CASE EVENT DATE: 20160106
